FAERS Safety Report 5315314-0 (Version None)
Quarter: 2007Q2

REPORT INFORMATION
  Report Type: 
  Country: None (occurrence: None)
  Receive Date: 20070502
  Receipt Date: 20070420
  Transmission Date: 20071010
  Serious: Yes (Death)
  Sender: FDA-Public Use
  Company Number: JP-PFIZER INC-2007032960

PATIENT
  Age: 85 Year
  Sex: Female

DRUGS (7)
  1. ZYVOX [Suspect]
     Indication: SEPSIS
     Dosage: DAILY DOSE:1200MG
     Route: 042
     Dates: start: 20070328, end: 20070409
  2. MEROPEN [Concomitant]
     Route: 042
  3. MYCOSYST [Concomitant]
     Route: 042
  4. GASTER [Concomitant]
     Route: 042
  5. LASIX [Concomitant]
     Route: 042
  6. DIGOSIN [Concomitant]
     Route: 042
  7. VANCOMYCIN HYDROCHLORIDE [Concomitant]

REACTIONS (2)
  - PLATELET COUNT DECREASED [None]
  - SEPTIC SHOCK [None]
